FAERS Safety Report 9281242 (Version 1)
Quarter: 2013Q2

REPORT INFORMATION
  Report Type: Spontaneous
  Country: US (occurrence: None)
  Receive Date: 20130508
  Receipt Date: 20130508
  Transmission Date: 20140414
  Serious: No
  Sender: FDA-Public Use
  Company Number: None

PATIENT
  Age: 57 Year
  Sex: Female
  Weight: 70.31 kg

DRUGS (1)
  1. CYMBALTA [Suspect]
     Indication: FIBROMYALGIA
     Dosage: 1 CAPSULE, ONCE DAILY, PO
     Route: 048

REACTIONS (8)
  - Drug dose omission [None]
  - Paraesthesia [None]
  - Paraesthesia [None]
  - Photophobia [None]
  - Nausea [None]
  - Tinnitus [None]
  - Headache [None]
  - Palpitations [None]
